FAERS Safety Report 8719838 (Version 4)
Quarter: 2012Q4

REPORT INFORMATION
  Report Type: Report from Study
  Country: NL (occurrence: NL)
  Receive Date: 20120813
  Receipt Date: 20121015
  Transmission Date: 20130627
  Serious: Yes (Hospitalization)
  Sender: FDA-Public Use
  Company Number: NL-AMGEN-NLDCT2012049152

PATIENT
  Age: 53 Year
  Sex: Female

DRUGS (7)
  1. PANITUMUMAB [Suspect]
     Indication: PANCREATIC CARCINOMA
     Dosage: UNK
     Dates: start: 20120626, end: 20120724
  2. GEMZAR [Concomitant]
     Indication: PANCREATIC CARCINOMA
     Dosage: UNK
     Dates: start: 20120626, end: 20120724
  3. PARACETAMOL [Concomitant]
     Dosage: 500 mg, prn
     Route: 048
  4. OMEPRAZOLE [Concomitant]
     Dosage: 40 mg, qd
     Route: 048
  5. PHOSPHATE [Concomitant]
     Dosage: UNK UNK, qd
     Route: 054
     Dates: start: 20120710
  6. DOXYCYCLINE [Concomitant]
     Dosage: 100 mg, UNK
     Route: 048
     Dates: start: 20120710
  7. MOVICOLON [Concomitant]
     Dosage: UNK
     Dates: start: 20120525

REACTIONS (4)
  - Weight decreased [Recovered/Resolved]
  - Nausea [Recovering/Resolving]
  - Vomiting [Recovering/Resolving]
  - Fatigue [Recovering/Resolving]
